FAERS Safety Report 9464164 (Version 1)
Quarter: 2013Q3

REPORT INFORMATION
  Report Type: Report from Study
  Country: IE (occurrence: IE)
  Receive Date: 20130819
  Receipt Date: 20130819
  Transmission Date: 20140515
  Serious: Yes (Hospitalization)
  Sender: FDA-Public Use
  Company Number: PHHY2013IE088988

PATIENT
  Sex: Female

DRUGS (3)
  1. GILENYA [Suspect]
     Indication: RELAPSING-REMITTING MULTIPLE SCLEROSIS
     Dosage: 0.5 MG, QD
     Route: 048
     Dates: start: 20130815
  2. LOPRAX [Concomitant]
     Dosage: 5 MG, QD
  3. EVENING PRIMROSE OIL [Concomitant]

REACTIONS (1)
  - Ventricular tachycardia [Recovering/Resolving]
